FAERS Safety Report 6567415-7 (Version None)
Quarter: 2010Q1

REPORT INFORMATION
  Report Type: 
  Country: None (occurrence: None)
  Receive Date: 20100202
  Receipt Date: 20100122
  Transmission Date: 20100710
  Serious: Yes (Death)
  Sender: FDA-Public Use
  Company Number: US-BAXTER-2010BH001696

PATIENT
  Age: 45 Year
  Sex: Male

DRUGS (4)
  1. DIANEAL [Suspect]
     Indication: PERITONEAL DIALYSIS
     Route: 033
     Dates: end: 20090112
  2. DIANEAL [Suspect]
     Route: 033
     Dates: end: 20090112
  3. DIANEAL [Suspect]
     Indication: PERITONEAL DIALYSIS
     Route: 033
     Dates: end: 20090112
  4. DIANEAL [Suspect]
     Route: 033
     Dates: end: 20090112

REACTIONS (1)
  - CARDIAC ARREST [None]
